FAERS Safety Report 8964773 (Version 1)
Quarter: 2012Q4

REPORT INFORMATION
  Report Type: 
  Country: CO (occurrence: CO)
  Receive Date: 20121213
  Receipt Date: 20121213
  Transmission Date: 20130627
  Serious: Yes (Other)
  Sender: FDA-Public Use
  Company Number: CO-PFIZER INC-2012293909

PATIENT
  Age: 8 Year
  Sex: Female

DRUGS (6)
  1. GENOTROPIN [Suspect]
     Indication: GROWTH HORMONE DEFICIENCY
     Dosage: 0.7 mg, 1x/day
     Route: 058
     Dates: start: 20121031, end: 20121107
  2. GENOTROPIN [Suspect]
     Indication: PITUITARY HYPOPLASIA
     Dosage: 0.7 mg, 1x/day
     Route: 058
     Dates: start: 20121127
  3. KETOTIFEN [Concomitant]
     Indication: RHINITIS
     Dosage: UNK
     Route: 048
     Dates: start: 201210
  4. SALBUTAMOL [Concomitant]
     Indication: ASTHMA
     Dosage: UNK
     Route: 045
     Dates: start: 201202
  5. MONTELUKAST [Concomitant]
     Indication: ASTHMA
     Dosage: UNK
     Route: 048
     Dates: start: 201202
  6. BECLOMETHASONE [Concomitant]
     Indication: ASTHMA
     Dosage: UNK
     Dates: start: 201202

REACTIONS (4)
  - Angiopathy [Unknown]
  - Intracranial pressure increased [Unknown]
  - Headache [Recovered/Resolved]
  - Injection site pain [Recovered/Resolved]
